FAERS Safety Report 4308800-3 (Version None)
Quarter: 2004Q1

REPORT INFORMATION
  Report Type: 
  Country: None (occurrence: None)
  Receive Date: 20040301
  Receipt Date: 20040301
  Transmission Date: 20041129
  Serious: Yes (Hospitalization)
  Sender: FDA-Public Use
  Company Number: None

PATIENT
  Age: 90 Year
  Sex: Male
  Weight: 78.8 kg

DRUGS (5)
  1. ENALAPRIL MALEATE [Suspect]
     Dosage: 10 MG PO Q 12 CHRONIC
     Route: 048
     Dates: end: 20030929
  2. ASPIRIN [Concomitant]
  3. TRAZODONE HCL [Concomitant]
  4. PROTONIX [Concomitant]
  5. SINEMET [Concomitant]

REACTIONS (5)
  - ANAEMIA [None]
  - ASTHENIA [None]
  - CONFUSIONAL STATE [None]
  - RENAL FAILURE [None]
  - URINARY TRACT INFECTION [None]
